FAERS Safety Report 24223219 (Version 1)
Quarter: 2024Q3

REPORT INFORMATION
  Report Type: Spontaneous
  Country: US (occurrence: None)
  Receive Date: 20240816
  Receipt Date: 20240816
  Transmission Date: 20241016
  Serious: Yes (Hospitalization)
  Sender: Public
  Company Number: None

PATIENT
  Age: 74 Year
  Sex: Female

DRUGS (1)
  1. TERIPARATIDE ACETATE [Suspect]
     Active Substance: TERIPARATIDE ACETATE
     Indication: Osteoporosis
     Dosage: 20MCG DAILY UNDER THE SKIN
     Route: 058
     Dates: start: 20240501

REACTIONS (2)
  - Spinal operation [None]
  - Bone disorder [None]

NARRATIVE: CASE EVENT DATE: 20240701
